FAERS Safety Report 5160001-5 (Version None)
Quarter: 2006Q4

REPORT INFORMATION
  Report Type: 
  Country: None (occurrence: None)
  Receive Date: 20061129
  Receipt Date: 20060612
  Transmission Date: 20070319
  Serious: No
  Sender: FDA-Public Use
  Company Number: US-GLAXOSMITHKLINE-A0608626A

PATIENT
  Age: 47 Year
  Sex: Female

DRUGS (6)
  1. WELLBUTRIN SR [Suspect]
     Indication: DEPRESSION
     Dosage: 150MG TWICE PER DAY
     Route: 048
     Dates: start: 20050801, end: 20060301
  2. AMBIEN [Concomitant]
  3. CALCIUM [Concomitant]
  4. FISH OIL [Concomitant]
  5. MULTI-VITAMIN [Concomitant]
  6. ESTROGENS SOL/INJ [Concomitant]
     Indication: MENOPAUSE

REACTIONS (3)
  - ALOPECIA [None]
  - MEMORY IMPAIRMENT [None]
  - WEIGHT DECREASED [None]
